FAERS Safety Report 13777506 (Version 1)
Quarter: 2017Q3

REPORT INFORMATION
  Report Type: Other
  Country: IN (occurrence: IN)
  Receive Date: 20170721
  Receipt Date: 20170721
  Transmission Date: 20171127
  Serious: Yes (Other)
  Sender: FDA-Public Use
  Company Number: IN-HETERO LABS LTD-2023571

PATIENT
  Age: 22 Year
  Sex: Male

DRUGS (3)
  1. ARIPIPRAZOLE. [Suspect]
     Active Substance: ARIPIPRAZOLE
     Indication: SCHIZOPHRENIA
     Route: 065
  2. ILOPERIDONE. [Concomitant]
     Active Substance: ILOPERIDONE
     Route: 065
  3. CLOZAPINE. [Concomitant]
     Active Substance: CLOZAPINE
     Route: 065

REACTIONS (5)
  - Psychotic disorder [Recovered/Resolved]
  - Constipation [Recovered/Resolved]
  - Delusion of grandeur [Recovered/Resolved]
  - Sedation [Recovered/Resolved]
  - Withdrawal syndrome [Recovered/Resolved]
